FAERS Safety Report 20840639 (Version 7)
Quarter: 2025Q2

REPORT INFORMATION
  Report Type: Spontaneous
  Country: US (occurrence: US)
  Receive Date: 20220517
  Receipt Date: 20250624
  Transmission Date: 20250717
  Serious: No
  Sender: PFIZER
  Company Number: US-PFIZER INC-202101303578

PATIENT
  Age: 61 Year
  Sex: Female

DRUGS (4)
  1. IBRANCE [Suspect]
     Active Substance: PALBOCICLIB
     Indication: Breast cancer female
     Route: 048
     Dates: start: 20181113
  2. IBRANCE [Suspect]
     Active Substance: PALBOCICLIB
     Route: 048
     Dates: start: 20200427
  3. LETROZOLE [Concomitant]
     Active Substance: LETROZOLE
  4. OMEPRAZOLE [Concomitant]
     Active Substance: OMEPRAZOLE

REACTIONS (5)
  - White blood cell count decreased [Recovered/Resolved]
  - Nasopharyngitis [Unknown]
  - Dry mouth [Not Recovered/Not Resolved]
  - Sinus disorder [Unknown]
  - Product dose omission in error [Unknown]
